FAERS Safety Report 20141861 (Version 1)
Quarter: 2021Q4

REPORT INFORMATION
  Report Type: Spontaneous
  Country: US (occurrence: None)
  Receive Date: 20211202
  Receipt Date: 20211202
  Transmission Date: 20220304
  Serious: No
  Sender: FDA-Public Use
  Company Number: None

PATIENT
  Age: 71 Year
  Weight: 93.44 kg

DRUGS (1)
  1. ATORVASTATIN CALCIUM [Suspect]
     Active Substance: ATORVASTATIN CALCIUM
     Dates: start: 20211103, end: 20211116

REACTIONS (3)
  - Cognitive disorder [None]
  - Memory impairment [None]
  - Alopecia [None]

NARRATIVE: CASE EVENT DATE: 20211103
